FAERS Safety Report 16364735 (Version 1)
Quarter: 2019Q2

REPORT INFORMATION
  Report Type: Spontaneous
  Country: CN (occurrence: CN)
  Receive Date: 20190529
  Receipt Date: 20190529
  Transmission Date: 20190711
  Serious: Yes (Other)
  Sender: FDA-Public Use
  Company Number: CN-ROCHE-2322520

PATIENT
  Age: 65 Year
  Sex: Female

DRUGS (13)
  1. CAPECITABINE. [Suspect]
     Active Substance: CAPECITABINE
     Dosage: Q14D(2 WEEKS ON, 1 WEEK OFF)
     Route: 048
     Dates: start: 20170516
  2. VINORELBINE [Concomitant]
     Active Substance: VINORELBINE\VINORELBINE TARTRATE
     Indication: BREAST CANCER METASTATIC
     Route: 065
     Dates: start: 20171201
  3. OXALIPLATIN. [Concomitant]
     Active Substance: OXALIPLATIN
     Indication: BREAST CANCER METASTATIC
     Route: 065
     Dates: start: 20180323
  4. IRINOTECAN [Concomitant]
     Active Substance: IRINOTECAN
     Indication: BREAST CANCER METASTATIC
     Route: 065
     Dates: start: 20171025
  5. CALCIUM FOLINATE [Concomitant]
     Active Substance: LEUCOVORIN CALCIUM
     Indication: BREAST CANCER METASTATIC
     Route: 065
     Dates: start: 20180323
  6. XELODA [Suspect]
     Active Substance: CAPECITABINE
     Indication: BREAST CANCER METASTATIC
  7. DOCETAXEL. [Concomitant]
     Active Substance: DOCETAXEL
     Indication: BREAST CANCER METASTATIC
     Route: 065
     Dates: start: 20161118
  8. RALTITREXED [Concomitant]
     Active Substance: RALTITREXED
     Indication: BREAST CANCER METASTATIC
     Route: 065
     Dates: start: 20171025
  9. CISPLATIN. [Concomitant]
     Active Substance: CISPLATIN
     Indication: BREAST CANCER METASTATIC
     Route: 065
     Dates: start: 20171201
  10. CAPECITABINE. [Suspect]
     Active Substance: CAPECITABINE
     Indication: BREAST CANCER METASTATIC
     Route: 048
     Dates: start: 20161118
  11. FLUOROURACIL. [Concomitant]
     Active Substance: FLUOROURACIL
     Indication: BREAST CANCER METASTATIC
     Route: 065
     Dates: start: 20180323
  12. XELODA [Suspect]
     Active Substance: CAPECITABINE
     Indication: BREAST CANCER
     Route: 048
     Dates: start: 20170512
  13. GIMERACIL;OTERACIL POTASSIUM;TEGAFUR [Concomitant]
     Active Substance: GIMERACIL\OTERACIL\TEGAFUR
     Indication: BREAST CANCER METASTATIC
     Route: 048

REACTIONS (2)
  - Hypokalaemia [Unknown]
  - Blood bilirubin increased [Unknown]
